FAERS Safety Report 5039152-1 (Version None)
Quarter: 2006Q2

REPORT INFORMATION
  Report Type: 
  Country: None (occurrence: None)
  Receive Date: 20060629
  Receipt Date: 20060621
  Transmission Date: 20061013
  Serious: Yes (Other)
  Sender: FDA-Public Use
  Company Number: GB-GLAXOSMITHKLINE-B0428484A

PATIENT
  Sex: Female

DRUGS (5)
  1. SEROXAT [Suspect]
     Route: 065
  2. PAROXETINE HCL [Suspect]
     Route: 048
  3. CLOMIPRAMIDE [Suspect]
     Route: 065
  4. SULPIRIDE [Suspect]
     Route: 065
  5. CANNABIS [Concomitant]
     Route: 065

REACTIONS (4)
  - ILL-DEFINED DISORDER [None]
  - INTENTIONAL SELF-INJURY [None]
  - MULTIPLE DRUG OVERDOSE [None]
  - OVERDOSE [None]
